FAERS Safety Report 6028657-2 (Version None)
Quarter: 2009Q1

REPORT INFORMATION
  Report Type: 
  Country: None (occurrence: None)
  Receive Date: 20090106
  Receipt Date: 20081223
  Transmission Date: 20090719
  Serious: Yes (Hospitalization)
  Sender: FDA-Public Use
  Company Number: AU-CELGENEUS-THAAU200800345

PATIENT
  Sex: Male

DRUGS (5)
  1. THALIDOMIDE [Suspect]
     Indication: MYELODYSPLASTIC SYNDROME
     Route: 048
     Dates: start: 20080708, end: 20080803
  2. VIDAZA [Suspect]
     Indication: MYELODYSPLASTIC SYNDROME
     Route: 058
     Dates: start: 20080708, end: 20080714
  3. SERETIDE [Concomitant]
     Route: 055
  4. COLOXYL [Concomitant]
     Indication: CONSTIPATION
  5. SENNA [Concomitant]
     Indication: CONSTIPATION

REACTIONS (1)
  - SYNCOPE [None]
